FAERS Safety Report 16463397 (Version 2)
Quarter: 2019Q3

REPORT INFORMATION
  Report Type: Spontaneous
  Country: US (occurrence: US)
  Receive Date: 20190621
  Receipt Date: 20190722
  Transmission Date: 20191004
  Serious: No
  Sender: FDA-Public Use
  Company Number: US-PFIZER INC-2019263705

PATIENT
  Age: 71 Year
  Sex: Female
  Weight: 56.7 kg

DRUGS (2)
  1. EUCRISA [Suspect]
     Active Substance: CRISABOROLE
     Indication: ECZEMA
     Dosage: UNK
     Dates: start: 201904, end: 201904
  2. EUCRISA [Suspect]
     Active Substance: CRISABOROLE
     Indication: RASH

REACTIONS (5)
  - Drug ineffective [Unknown]
  - Poor quality product administered [Unknown]
  - Eczema [Not Recovered/Not Resolved]
  - Application site inflammation [Not Recovered/Not Resolved]
  - Product quality issue [Unknown]

NARRATIVE: CASE EVENT DATE: 201904
